FAERS Safety Report 21056488 (Version 1)
Quarter: 2022Q3

REPORT INFORMATION
  Report Type: Report from Study
  Country: TH (occurrence: TH)
  Receive Date: 20220708
  Receipt Date: 20220708
  Transmission Date: 20221027
  Serious: Yes (Hospitalization)
  Sender: FDA-Public Use
  Company Number: TH-NOVARTISPH-NVSC2022TH154785

PATIENT
  Sex: Male

DRUGS (1)
  1. TABRECTA [Suspect]
     Active Substance: CAPMATINIB
     Indication: Malignant mesenchymoma
     Dosage: UNK
     Route: 048
     Dates: start: 20220614

REACTIONS (2)
  - Tuberculosis [Unknown]
  - Weight decreased [Unknown]
